FAERS Safety Report 21514737 (Version 2)
Quarter: 2022Q4

REPORT INFORMATION
  Report Type: Report from Study
  Country: DE (occurrence: DE)
  Receive Date: 20221027
  Receipt Date: 20221125
  Transmission Date: 20230113
  Serious: Yes (Other)
  Sender: FDA-Public Use
  Company Number: DE-TAKEDA-2022TUS078207

PATIENT
  Age: 16 Year
  Sex: Female

DRUGS (8)
  1. LANADELUMAB [Suspect]
     Active Substance: LANADELUMAB
     Indication: Hereditary angioedema
     Dosage: 300 MILLIGRAM, Q2WEEKS
     Route: 065
     Dates: start: 20210618
  2. Maxim [Concomitant]
     Indication: Endometriosis
     Dosage: 1 DOSAGE FORM
     Route: 048
     Dates: start: 20200901
  3. SUMATRIPTAN [Concomitant]
     Active Substance: SUMATRIPTAN
     Indication: Migraine
     Dosage: 50 MILLIGRAM
     Route: 048
     Dates: start: 20201001
  4. DESLORATADINE [Concomitant]
     Active Substance: DESLORATADINE
     Indication: Cold urticaria
     Dosage: 10 MILLIGRAM
     Route: 048
     Dates: start: 20211210
  5. NALOXONE HYDROCHLORIDE\TILIDINE HYDROCHLORIDE [Concomitant]
     Active Substance: NALOXONE HYDROCHLORIDE\TILIDINE HYDROCHLORIDE
     Indication: Endometriosis
     Dosage: 1 DOSAGE FORM
     Route: 048
     Dates: start: 20220518, end: 20220523
  6. LYRICA [Concomitant]
     Active Substance: PREGABALIN
     Indication: Hemiparesis
     Dosage: 150 MILLIGRAM
     Route: 048
     Dates: start: 20220817, end: 20220817
  7. LYRICA [Concomitant]
     Active Substance: PREGABALIN
     Indication: Hypoaesthesia
     Dosage: 300 MILLIGRAM
     Route: 048
     Dates: start: 20220731
  8. BUPROPION [Concomitant]
     Active Substance: BUPROPION
     Indication: Depression
     Dosage: 300 MILLIGRAM
     Route: 048
     Dates: start: 20220501

REACTIONS (1)
  - Haemorrhagic diathesis [Not Recovered/Not Resolved]

NARRATIVE: CASE EVENT DATE: 20220405
